APPROVED DRUG PRODUCT: LEVETIRACETAM
Active Ingredient: LEVETIRACETAM
Strength: 500MG
Dosage Form/Route: TABLET, EXTENDED RELEASE;ORAL
Application: A203059 | Product #001
Applicant: SUN PHARMACEUTICAL INDUSTRIES LTD
Approved: Sep 9, 2013 | RLD: No | RS: No | Type: DISCN